FAERS Safety Report 4351305-4 (Version None)
Quarter: 2004Q2

REPORT INFORMATION
  Report Type: 
  Country: None (occurrence: None)
  Receive Date: 20040428
  Receipt Date: 20040416
  Transmission Date: 20050107
  Serious: Yes (Hospitalization, Other)
  Sender: FDA-Public Use
  Company Number: 2004026318

PATIENT
  Sex: Female

DRUGS (3)
  1. NEURONTIN [Suspect]
     Indication: ILL-DEFINED DISORDER
  2. CELECOXIB (CELECOXIB) [Suspect]
     Indication: ILL-DEFINED DISORDER
  3. ALL OTHER THERAPEUTIC PRODUCTS (ALL OTHER THERAPEUTIC PRODUCTS) [Concomitant]

REACTIONS (9)
  - COLON INJURY [None]
  - DIABETES MELLITUS [None]
  - DIFFICULTY IN WALKING [None]
  - ECZEMA [None]
  - INFECTION [None]
  - LOSS OF CONSCIOUSNESS [None]
  - NERVE INJURY [None]
  - PAIN [None]
  - PARAESTHESIA [None]
